FAERS Safety Report 13373076 (Version 1)
Quarter: 2017Q1

REPORT INFORMATION
  Report Type: Spontaneous
  Country: US (occurrence: US)
  Receive Date: 20170326
  Receipt Date: 20170326
  Transmission Date: 20170429
  Serious: No
  Sender: FDA-Public Use
  Company Number: None

PATIENT
  Age: 72 Year
  Sex: Female
  Weight: 62.55 kg

DRUGS (10)
  1. FISH OIL [Concomitant]
     Active Substance: FISH OIL
  2. LISINOPRIL. [Concomitant]
     Active Substance: LISINOPRIL
  3. METOPROL TAR [Concomitant]
  4. AMLODIPINE [Concomitant]
     Active Substance: AMLODIPINE BESYLATE
  5. VITAMIN D3 [Concomitant]
     Active Substance: CHOLECALCIFEROL
  6. HYDRALAZINE 25 MG [Suspect]
     Active Substance: HYDRALAZINE HYDROCHLORIDE
     Indication: HYPERTENSION
     Dosage: ?          QUANTITY:1 TABLET(S);?
     Route: 048
     Dates: start: 20161208, end: 20170319
  7. VITAMIN B6 [Concomitant]
     Active Substance: PYRIDOXINE HYDROCHLORIDE
  8. MULTI VITAMIN [Concomitant]
     Active Substance: VITAMINS
  9. ARDS 2 EYE VITAMINS [Concomitant]
  10. CALCIUM [Concomitant]
     Active Substance: CALCIUM

REACTIONS (14)
  - Paraesthesia [None]
  - Palpitations [None]
  - Depression [None]
  - Micturition urgency [None]
  - Facial pain [None]
  - Chills [None]
  - Anxiety [None]
  - Insomnia [None]
  - Oropharyngeal pain [None]
  - Drug intolerance [None]
  - Mental disorder [None]
  - Chest pain [None]
  - Pain in jaw [None]
  - Muscular weakness [None]

NARRATIVE: CASE EVENT DATE: 20170319
